FAERS Safety Report 5636518-3 (Version None)
Quarter: 2008Q1

REPORT INFORMATION
  Report Type: 
  Country: None (occurrence: None)
  Receive Date: 20080220
  Receipt Date: 20080204
  Transmission Date: 20080703
  Serious: Yes (Other)
  Sender: FDA-Public Use
  Company Number: S08-FRA-00588-01

PATIENT
  Age: 78 Year
  Sex: Female

DRUGS (4)
  1. ESCITALOPRAM [Suspect]
     Indication: DEPRESSION
     Dosage: 10 MG QD PO
     Route: 048
     Dates: start: 20071019, end: 20071025
  2. CETRIZINE [Concomitant]
  3. ACTONEL [Concomitant]
  4. ALPRAZOLAM [Concomitant]

REACTIONS (5)
  - C-REACTIVE PROTEIN INCREASED [None]
  - LYMPHOPENIA [None]
  - OEDEMA PERIPHERAL [None]
  - PURPURA [None]
  - RASH MACULO-PAPULAR [None]
